FAERS Safety Report 13643259 (Version 2)
Quarter: 2017Q3

REPORT INFORMATION
  Report Type: Report from Study
  Country: JP (occurrence: JP)
  Receive Date: 20170612
  Receipt Date: 20170707
  Transmission Date: 20171127
  Serious: Yes (Other)
  Sender: FDA-Public Use
  Company Number: JP-EISAI MEDICAL RESEARCH-EC-2017-028335

PATIENT
  Age: 40 Year
  Sex: Male

DRUGS (11)
  1. FYCOMPA [Suspect]
     Active Substance: PERAMPANEL
     Route: 048
     Dates: start: 20161228, end: 20170109
  2. FYCOMPA [Suspect]
     Active Substance: PERAMPANEL
     Route: 048
     Dates: start: 20170125, end: 20170202
  3. E KEPPRA [Concomitant]
     Active Substance: LEVETIRACETAM
  4. GRAMALIL [Concomitant]
     Active Substance: TIAPRIDE HYDROCHLORIDE
  5. PURSENNID [Concomitant]
     Active Substance: SENNOSIDES A AND B
  6. RISPERDAL [Concomitant]
     Active Substance: RISPERIDONE
  7. MAGNESIUM OXIDE. [Concomitant]
     Active Substance: MAGNESIUM OXIDE
  8. FYCOMPA [Suspect]
     Active Substance: PERAMPANEL
     Indication: PARTIAL SEIZURES
     Route: 048
     Dates: start: 20161215, end: 20161227
  9. FYCOMPA [Suspect]
     Active Substance: PERAMPANEL
     Route: 048
     Dates: start: 20170110, end: 20170124
  10. DEPAKENE [Concomitant]
     Active Substance: VALPROIC ACID
  11. TOPINA [Concomitant]
     Active Substance: TOPIRAMATE

REACTIONS (1)
  - Dizziness [Recovered/Resolved]

NARRATIVE: CASE EVENT DATE: 20170122
